FAERS Safety Report 4934133-8 (Version None)
Quarter: 2006Q1

REPORT INFORMATION
  Report Type: 
  Country: None (occurrence: None)
  Receive Date: 20060303
  Receipt Date: 20060216
  Transmission Date: 20060701
  Serious: Yes (Hospitalization)
  Sender: FDA-Public Use
  Company Number: 2006-00271

PATIENT
  Age: 71 Year
  Sex: Male
  Weight: 84.4 kg

DRUGS (5)
  1. VELCADE [Suspect]
     Indication: MULTIPLE MYELOMA
     Dosage: 2.70 MG, UNK, IV BOLUS
     Route: 040
     Dates: start: 20051107, end: 20051222
  2. EZETIMIBE (EZETIMIBE) [Concomitant]
  3. LIPITOR [Concomitant]
  4. HYDROCODONE BITARTRATE [Concomitant]
  5. LUPRON [Concomitant]

REACTIONS (13)
  - ANOREXIA [None]
  - ASTHENIA [None]
  - BALANCE DISORDER [None]
  - CONSTIPATION [None]
  - DIARRHOEA [None]
  - DIZZINESS [None]
  - ENCEPHALITIS [None]
  - FALL [None]
  - HEAD INJURY [None]
  - NEUROPATHY [None]
  - ORAL INTAKE REDUCED [None]
  - ORTHOSTATIC HYPOTENSION [None]
  - SKIN LACERATION [None]
